FAERS Safety Report 7608916-X (Version None)
Quarter: 2011Q3

REPORT INFORMATION
  Report Type: 
  Country: None (occurrence: None)
  Receive Date: 20110713
  Receipt Date: 20110713
  Transmission Date: 20111222
  Serious: Yes (Other)
  Sender: FDA-Public Use
  Company Number: None

PATIENT
  Age: 86 Year
  Sex: Female
  Weight: 68.0396 kg

DRUGS (1)
  1. NITROFURANTOIN [Suspect]
     Indication: URINARY TRACT INFECTION
     Dosage: ONE 2 X DAILY 10 DAYS
     Dates: start: 20110513

REACTIONS (7)
  - ARTHRALGIA [None]
  - DYSPNOEA [None]
  - ASTHENIA [None]
  - HEADACHE [None]
  - MYALGIA [None]
  - FATIGUE [None]
  - RASH [None]
